FAERS Safety Report 19845654 (Version 4)
Quarter: 2022Q1

REPORT INFORMATION
  Report Type: Spontaneous
  Country: FR (occurrence: FR)
  Receive Date: 20210916
  Receipt Date: 20220125
  Transmission Date: 20220423
  Serious: Yes (Hospitalization, Other)
  Sender: FDA-Public Use
  Company Number: FR-BIOGEN-2021BI01047016

PATIENT
  Age: 47 Year
  Sex: Female

DRUGS (5)
  1. TYSABRI [Suspect]
     Active Substance: NATALIZUMAB
     Indication: Multiple sclerosis
     Dosage: 100 DOSES
     Route: 065
     Dates: start: 20100809, end: 20190117
  2. TYSABRI [Suspect]
     Active Substance: NATALIZUMAB
     Dosage: 16 DOSES
     Route: 065
     Dates: start: 20190314, end: 20210706
  3. PFIZER-BIONTECH COVID-19 VACCINE [Concomitant]
     Active Substance: TOZINAMERAN
     Indication: COVID-19 prophylaxis
     Dosage: 1ST DOSE
     Route: 065
     Dates: start: 20210401
  4. PFIZER-BIONTECH COVID-19 VACCINE [Concomitant]
     Active Substance: TOZINAMERAN
     Dosage: 2ND DOSE
     Route: 065
     Dates: start: 20210530
  5. XANAX [Concomitant]
     Active Substance: ALPRAZOLAM
     Indication: Anxiety
     Route: 065

REACTIONS (4)
  - Progressive multifocal leukoencephalopathy [Unknown]
  - Immune reconstitution inflammatory syndrome [Unknown]
  - Prescribed underdose [Recovered/Resolved]
  - Multiple sclerosis [Unknown]

NARRATIVE: CASE EVENT DATE: 20190314
